FAERS Safety Report 9605934 (Version 1)
Quarter: 2013Q4

REPORT INFORMATION
  Report Type: Report from Study
  Country: US (occurrence: US)
  Receive Date: 20131008
  Receipt Date: 20131008
  Transmission Date: 20140711
  Serious: Yes (Death)
  Sender: FDA-Public Use
  Company Number: US-ROCHE-1284261

PATIENT
  Sex: Male

DRUGS (1)
  1. VALCYTE [Suspect]
     Indication: RENAL TRANSPLANT
     Dosage: FREQUENCY : EVERY OTHER DAY
     Route: 048

REACTIONS (1)
  - Death [Fatal]
